FAERS Safety Report 9279004 (Version 2)
Quarter: 2013Q2

REPORT INFORMATION
  Report Type: Report from Study
  Country: HU (occurrence: HU)
  Receive Date: 20130508
  Receipt Date: 20130624
  Transmission Date: 20140414
  Serious: Yes (Hospitalization)
  Sender: FDA-Public Use
  Company Number: HU-GLAXOSMITHKLINE-B0889792A

PATIENT
  Age: 84 Year
  Sex: Male

DRUGS (2)
  1. SERETIDE [Suspect]
     Indication: ASTHMA
     Dosage: 1PUFF TWICE PER DAY
     Route: 065
     Dates: start: 201211, end: 201303
  2. CARDURA [Concomitant]
     Dosage: .5TAB PER DAY

REACTIONS (4)
  - Aphthous stomatitis [Recovered/Resolved]
  - Infection [Unknown]
  - Decreased appetite [Unknown]
  - Weight decreased [Unknown]
